FAERS Safety Report 8711993 (Version 2)
Quarter: 2013Q2

REPORT INFORMATION
  Report Type: Spontaneous
  Country: CA (occurrence: CA)
  Receive Date: 20120807
  Receipt Date: 20130613
  Transmission Date: 20140414
  Serious: Yes (Other)
  Sender: FDA-Public Use
  Company Number: CHPA2012CA015515

PATIENT
  Age: 86 Year
  Sex: Female

DRUGS (1)
  1. EXCEDRIN EXTRA STRENGTH - CA [Suspect]
     Indication: PAIN
     Dosage: 1 DF, QD
     Route: 048

REACTIONS (3)
  - Drug dependence [Unknown]
  - Therapeutic response unexpected [Unknown]
  - Off label use [Unknown]
